FAERS Safety Report 24792828 (Version 1)
Quarter: 2024Q4

REPORT INFORMATION
  Report Type: Spontaneous
  Country: US (occurrence: US)
  Receive Date: 20241231
  Receipt Date: 20241231
  Transmission Date: 20250115
  Serious: Yes (Other)
  Sender: AUROBINDO
  Company Number: US-AUROBINDO-AUR-APL-2024-063490

PATIENT
  Age: 23 Year
  Sex: Male

DRUGS (1)
  1. LEVOTHYROXINE SODIUM [Suspect]
     Active Substance: LEVOTHYROXINE SODIUM
     Indication: Autoimmune thyroiditis
     Route: 065

REACTIONS (5)
  - Graves^ disease [Unknown]
  - Hyperthyroidism [Unknown]
  - Weight decreased [Unknown]
  - Insomnia [Unknown]
  - Palpitations [Unknown]
